FAERS Safety Report 6785077-0 (Version None)
Quarter: 2010Q2

REPORT INFORMATION
  Report Type: 
  Country: None (occurrence: None)
  Receive Date: 20100622
  Receipt Date: 20100607
  Transmission Date: 20101027
  Serious: Yes (Other)
  Sender: FDA-Public Use
  Company Number: AU-GILEAD-E2B_00000735

PATIENT
  Sex: Female
  Weight: 72.8 kg

DRUGS (4)
  1. AMBRISENTAN [Suspect]
     Indication: DRUG USE FOR UNKNOWN INDICATION
     Dosage: 2.5MG PER DAY
     Route: 065
  2. FRUSEMIDE [Concomitant]
  3. SPIRONOLACTONE [Concomitant]
  4. WARFARIN [Concomitant]

REACTIONS (5)
  - ANXIETY [None]
  - HYPOMANIA [None]
  - INSOMNIA [None]
  - MEDICATION ERROR [None]
  - PRESSURE OF SPEECH [None]
